FAERS Safety Report 7057402-7 (Version None)
Quarter: 2010Q4

REPORT INFORMATION
  Report Type: 
  Country: None (occurrence: None)
  Receive Date: 20101022
  Receipt Date: 20101012
  Transmission Date: 20110411
  Serious: Yes (Hospitalization)
  Sender: FDA-Public Use
  Company Number: CA-JNJFOC-20101003653

PATIENT
  Sex: Male
  Weight: 140 kg

DRUGS (1)
  1. REMICADE [Suspect]
     Indication: PSORIASIS
     Route: 042

REACTIONS (6)
  - EPISTAXIS [None]
  - HAEMATURIA [None]
  - MALAISE [None]
  - MULTI-ORGAN FAILURE [None]
  - PNEUMONIA [None]
  - VOMITING [None]
